FAERS Safety Report 4644635-X (Version None)
Quarter: 2005Q2

REPORT INFORMATION
  Report Type: 
  Country: None (occurrence: None)
  Receive Date: 20050425
  Receipt Date: 20050425
  Transmission Date: 20051028
  Serious: Yes (Hospitalization)
  Sender: FDA-Public Use
  Company Number: None

PATIENT
  Age: 65 Year
  Sex: Female
  Weight: 71.82 kg

DRUGS (2)
  1. CLINDAMYCIN HCL [Suspect]
     Indication: TOOTH INFECTION
     Dosage: OTHER
     Dates: start: 20050219
  2. ESCITALOPRAM OXALATE [Concomitant]

REACTIONS (2)
  - CLOSTRIDIUM COLITIS [None]
  - CLOSTRIDIUM DIFFICILE TOXIN TEST POSITIVE [None]
